FAERS Safety Report 19962563 (Version 1)
Quarter: 2021Q4

REPORT INFORMATION
  Report Type: Report from Study
  Country: RO (occurrence: RO)
  Receive Date: 20211018
  Receipt Date: 20211018
  Transmission Date: 20220303
  Serious: Yes (Death, Other)
  Sender: FDA-Public Use
  Company Number: RO-NOVARTISPH-NVSC2021RO236694

PATIENT
  Sex: Male

DRUGS (1)
  1. ENTRESTO [Suspect]
     Active Substance: SACUBITRIL\VALSARTAN
     Indication: Cardiac failure
     Dosage: 1 DF, BID (24/26 MG)
     Route: 048
     Dates: start: 20211007

REACTIONS (2)
  - Cardiac arrest [Fatal]
  - Ventricular tachycardia [Fatal]

NARRATIVE: CASE EVENT DATE: 20211009
